FAERS Safety Report 5793163-7 (Version None)
Quarter: 2008Q2

REPORT INFORMATION
  Report Type: 
  Country: None (occurrence: None)
  Receive Date: 20080626
  Receipt Date: 20080619
  Transmission Date: 20081010
  Serious: Yes (Other)
  Sender: FDA-Public Use
  Company Number: APP200800540

PATIENT
  Age: 71 Year
  Sex: Female
  Weight: 61.5 kg

DRUGS (9)
  1. HEPARIN SODIUM INJECTION [Suspect]
     Indication: HAEMODIALYSIS
     Dosage: 3000 USP UNITS, ONCE, INTRAVENOUS
     Route: 042
     Dates: start: 20080618, end: 20080618
  2. ATIVAN [Concomitant]
  3. FOLIC ACID [Concomitant]
  4. NAMENDA [Concomitant]
  5. ATENOLOL [Concomitant]
  6. PAXIL [Concomitant]
  7. LIPITOR [Concomitant]
  8. ACETAMINOPHEN [Concomitant]
  9. NEPHROCAP [Concomitant]

REACTIONS (1)
  - INJECTION SITE HAEMORRHAGE [None]
